FAERS Safety Report 10900512 (Version 1)
Quarter: 2015Q1

REPORT INFORMATION
  Report Type: Spontaneous
  Country: US (occurrence: US)
  Receive Date: 20150310
  Receipt Date: 20150310
  Transmission Date: 20150721
  Serious: Yes (Hospitalization, Other)
  Sender: FDA-Public Use
  Company Number: US-AUROBINDO-AUR-APL-2015-01898

PATIENT
  Age: 83 Year
  Sex: Male

DRUGS (1)
  1. OXACILLIN [Suspect]
     Active Substance: OXACILLIN SODIUM
     Indication: PRODUCT USED FOR UNKNOWN INDICATION
     Dosage: UNK
     Route: 065

REACTIONS (2)
  - Respiratory failure [Recovered/Resolved]
  - Myoclonus [Recovered/Resolved]
